FAERS Safety Report 8450887-0 (Version None)
Quarter: 2012Q2

REPORT INFORMATION
  Report Type: 
  Country: None (occurrence: None)
  Receive Date: 20120620
  Receipt Date: 20120611
  Transmission Date: 20120825
  Serious: Yes (Other)
  Sender: FDA-Public Use
  Company Number: AR-JNJFOC-20120404127

PATIENT
  Sex: Female

DRUGS (4)
  1. INFLIXIMAB, RECOMBINANT [Suspect]
     Indication: RHEUMATOID ARTHRITIS
     Route: 042
     Dates: start: 20120201, end: 20120201
  2. INFLIXIMAB, RECOMBINANT [Suspect]
     Route: 042
     Dates: start: 20120131
  3. INFLIXIMAB, RECOMBINANT [Suspect]
     Route: 042
     Dates: start: 20100101
  4. INFLIXIMAB, RECOMBINANT [Suspect]
     Dosage: 2 AMPOULES
     Route: 042
     Dates: start: 20111115

REACTIONS (4)
  - PAIN [None]
  - INFLAMMATION [None]
  - DRUG INEFFECTIVE [None]
  - DIABETES MELLITUS [None]
